FAERS Safety Report 22212264 (Version 4)
Quarter: 2024Q3

REPORT INFORMATION
  Report Type: Report from Study
  Country: US (occurrence: US)
  Receive Date: 20230414
  Receipt Date: 20240924
  Transmission Date: 20241016
  Serious: Yes (Other)
  Sender: ABBVIE
  Company Number: US-ABBVIE-4726035

PATIENT
  Sex: Male
  Weight: 99 kg

DRUGS (1)
  1. RINVOQ [Suspect]
     Active Substance: UPADACITINIB
     Indication: Dermatitis atopic
     Route: 048
     Dates: start: 20230102

REACTIONS (9)
  - Urethral stent insertion [Unknown]
  - Asthenia [Unknown]
  - Nephrolithiasis [Not Recovered/Not Resolved]
  - Haemorrhage [Not Recovered/Not Resolved]
  - Burning sensation [Unknown]
  - Penis disorder [Not Recovered/Not Resolved]
  - Arthralgia [Unknown]
  - Psoriasis [Unknown]
  - Illness [Unknown]

NARRATIVE: CASE EVENT DATE: 20230101
